FAERS Safety Report 6370949-1 (Version None)
Quarter: 2009Q3

REPORT INFORMATION
  Report Type: 
  Country: None (occurrence: None)
  Receive Date: 20090923
  Receipt Date: 20071010
  Transmission Date: 20100115
  Serious: Yes (Other)
  Sender: FDA-Public Use
  Company Number: US-ASTRAZENECA-2006UW23048

PATIENT
  Age: 6524 Day
  Sex: Male
  Weight: 56 kg

DRUGS (22)
  1. SEROQUEL [Suspect]
     Indication: DEPRESSION
     Dosage: 200 MG EVERY MORNING AND 600 MG AT NIGHT
     Route: 048
     Dates: start: 20040202
  2. SEROQUEL [Suspect]
     Indication: ANXIETY
     Dosage: 200 MG EVERY MORNING AND 600 MG AT NIGHT
     Route: 048
     Dates: start: 20040202
  3. SEROQUEL [Suspect]
     Indication: INSOMNIA
     Dosage: 200 MG EVERY MORNING AND 600 MG AT NIGHT
     Route: 048
     Dates: start: 20040202
  4. SEROQUEL [Suspect]
     Indication: PSYCHOTIC DISORDER
     Dosage: 200 MG EVERY MORNING AND 600 MG AT NIGHT
     Route: 048
     Dates: start: 20040202
  5. SEROQUEL [Suspect]
     Route: 048
  6. SEROQUEL [Suspect]
     Route: 048
  7. SEROQUEL [Suspect]
     Route: 048
  8. SEROQUEL [Suspect]
     Route: 048
  9. ARIPIPRAZOLE [Concomitant]
  10. RISPERDAL [Concomitant]
     Dates: start: 20010713
  11. RISPERDAL [Concomitant]
     Dates: start: 20040202
  12. OLANZAPINE [Concomitant]
     Dates: start: 20010713
  13. DEPAKOTE [Concomitant]
     Indication: CONVULSION
  14. DEPAKOTE [Concomitant]
     Route: 048
     Dates: start: 20040217
  15. STRATTERA [Concomitant]
     Indication: ATTENTION DEFICIT/HYPERACTIVITY DISORDER
     Dates: start: 20040101
  16. STRATTERA [Concomitant]
     Route: 048
     Dates: start: 20040202
  17. CLONAZEPAM [Concomitant]
     Dates: start: 20050321
  18. ZANTAC [Concomitant]
     Route: 048
     Dates: start: 20050312
  19. ATENOLOL [Concomitant]
     Indication: WOLFF-PARKINSON-WHITE SYNDROME
     Dosage: 20 MG TO 37.5 MG DAILY
     Route: 048
     Dates: start: 20041130
  20. ATENOLOL [Concomitant]
     Indication: SUPRAVENTRICULAR TACHYCARDIA
     Dosage: 20 MG TO 37.5 MG DAILY
     Route: 048
     Dates: start: 20041130
  21. SYNTHROID [Concomitant]
     Dates: start: 20050614
  22. PREVACID [Concomitant]
     Indication: GASTROOESOPHAGEAL REFLUX DISEASE
     Dates: start: 20060308

REACTIONS (2)
  - BLOOD GLUCOSE INCREASED [None]
  - PANCREATITIS [None]
